FAERS Safety Report 19258158 (Version 2)
Quarter: 2021Q2

REPORT INFORMATION
  Report Type: Report from Study
  Country: None (occurrence: BR)
  Receive Date: 20210514
  Receipt Date: 20210621
  Transmission Date: 20210717
  Serious: Yes (Other)
  Sender: FDA-Public Use
  Company Number: BR-ABBVIE-21K-020-3902938-00

PATIENT
  Sex: Female

DRUGS (2)
  1. ASTRAZENECA COVID?19 VACCINE [Suspect]
     Active Substance: AZD-1222
     Indication: COVID-19 IMMUNISATION
     Route: 030
  2. SKYRIZI [Suspect]
     Active Substance: RISANKIZUMAB-RZAA
     Indication: PSORIASIS
     Dosage: UNSPECIFIED DOSE UNKNOWN
     Route: 058
     Dates: start: 20201124, end: 202104

REACTIONS (5)
  - Tooth fracture [Recovered/Resolved]
  - Face lift [Recovered/Resolved]
  - Psoriasis [Recovering/Resolving]
  - Endodontic procedure [Recovered/Resolved]
  - Headache [Unknown]

NARRATIVE: CASE EVENT DATE: 2021
